FAERS Safety Report 9409076 (Version 3)
Quarter: 2014Q1

REPORT INFORMATION
  Report Type: Spontaneous
  Country: US (occurrence: US)
  Receive Date: 20130719
  Receipt Date: 20140107
  Transmission Date: 20141002
  Serious: No
  Sender: FDA-Public Use
  Company Number: US-BIOGENIDEC-2013BI065458

PATIENT
  Sex: Female

DRUGS (4)
  1. AVONEX [Suspect]
     Indication: MULTIPLE SCLEROSIS
     Route: 030
  2. AVONEX [Suspect]
     Indication: MULTIPLE SCLEROSIS
     Route: 030
     Dates: start: 20060822
  3. IVIG [Concomitant]
     Indication: PRODUCT USED FOR UNKNOWN INDICATION
  4. IMURAN [Concomitant]
     Indication: CROHN^S DISEASE

REACTIONS (4)
  - Fibromyalgia [Not Recovered/Not Resolved]
  - Throat tightness [Recovered/Resolved]
  - Influenza like illness [Recovered/Resolved]
  - Muscular weakness [Not Recovered/Not Resolved]
